FAERS Safety Report 11576743 (Version 3)
Quarter: 2016Q3

REPORT INFORMATION
  Report Type: Report from Study
  Country: JP (occurrence: JP)
  Receive Date: 20150930
  Receipt Date: 20160822
  Transmission Date: 20161109
  Serious: Yes (Hospitalization, Other)
  Sender: FDA-Public Use
  Company Number: JP-VIIV HEALTHCARE LIMITED-JP2015JPN104590

PATIENT
  Age: 61 Year
  Sex: Male

DRUGS (9)
  1. JANUVIA [Concomitant]
     Active Substance: SITAGLIPTIN PHOSPHATE
     Indication: DIABETES MELLITUS
     Dosage: 50 MG, QD
  2. EUGLUCON [Concomitant]
     Active Substance: GLYBURIDE
     Indication: DIABETES MELLITUS
     Dosage: 1 DF, QD
     Dates: end: 20160214
  3. EUGLUCON [Concomitant]
     Active Substance: GLYBURIDE
     Dosage: 1.25 MG, BID
     Dates: start: 20160215
  4. URSO [Concomitant]
     Active Substance: URSODIOL
     Indication: HEPATITIS
     Dosage: 2 DF, BID
     Dates: start: 20151222
  5. ISENTRESS [Concomitant]
     Active Substance: RALTEGRAVIR POTASSIUM
     Indication: HIV INFECTION
     Dosage: 800 MG, UNK
     Dates: start: 20120507, end: 20141005
  6. DOLUTEGRAVIR [Suspect]
     Active Substance: DOLUTEGRAVIR
     Indication: HIV INFECTION
     Dosage: 50 MG, UNK
     Route: 048
     Dates: start: 20141006
  7. URSO [Concomitant]
     Active Substance: URSODIOL
     Indication: HEPATIC STEATOSIS
     Dosage: 3 DF, TID
     Dates: end: 20151221
  8. EDURANT [Concomitant]
     Active Substance: RILPIVIRINE HYDROCHLORIDE
     Indication: HIV INFECTION
     Dosage: 25 MG, UNK
     Route: 048
     Dates: start: 20121105
  9. BEZATOL SR [Concomitant]
     Active Substance: BEZAFIBRATE
     Indication: LIPID METABOLISM DISORDER
     Dosage: 400 MG, BID
     Dates: end: 20150802

REACTIONS (3)
  - Blood creatinine increased [Not Recovered/Not Resolved]
  - Cardiac failure congestive [Recovering/Resolving]
  - Lipid metabolism disorder [Not Recovered/Not Resolved]

NARRATIVE: CASE EVENT DATE: 20140714
